FAERS Safety Report 8491450-5 (Version None)
Quarter: 2012Q2

REPORT INFORMATION
  Report Type: 
  Country: None (occurrence: None)
  Receive Date: 20120402
  Receipt Date: 20110614
  Transmission Date: 20120825
  Serious: Yes (Other)
  Sender: FDA-Public Use
  Company Number: PHHY2011US52078

PATIENT

DRUGS (2)
  1. EXFORGE [Suspect]
  2. VALTURNA [Suspect]

REACTIONS (1)
  - HEPATIC FUNCTION ABNORMAL [None]
